FAERS Safety Report 9473723 (Version 1)
Quarter: 2013Q3

REPORT INFORMATION
  Report Type: Spontaneous
  Country: US (occurrence: US)
  Receive Date: 20130823
  Receipt Date: 20130823
  Transmission Date: 20140515
  Serious: No
  Sender: FDA-Public Use
  Company Number: US-BRISTOL-MYERS SQUIBB COMPANY-16937229

PATIENT
  Age: 65 Year
  Sex: 0

DRUGS (1)
  1. SPRYCEL [Suspect]
     Indication: LYMPHOCYTIC LEUKAEMIA

REACTIONS (2)
  - Heart rate increased [Unknown]
  - Headache [Unknown]
